FAERS Safety Report 8419617-2 (Version None)
Quarter: 2012Q2

REPORT INFORMATION
  Report Type: 
  Country: None (occurrence: None)
  Receive Date: 20120604
  Receipt Date: 20120604
  Transmission Date: 20120825
  Serious: Yes (Other)
  Sender: FDA-Public Use
  Company Number: None

PATIENT
  Sex: Female
  Weight: 63.5036 kg

DRUGS (2)
  1. ALPHAGAN [Suspect]
     Indication: GLAUCOMA
     Dosage: ONE DROP EACH EYE TWICE A DAY OPHTHALMIC
     Route: 047
     Dates: start: 20120601, end: 20120601
  2. LUMIGAN [Suspect]
     Indication: GLAUCOMA
     Dosage: ONE DROP EACH EYE ONCE A DAY OPHTHALMIC
     Route: 047
     Dates: start: 20120529, end: 20120529

REACTIONS (8)
  - DRY MOUTH [None]
  - INSTILLATION SITE PAIN [None]
  - VISUAL IMPAIRMENT [None]
  - OCULAR HYPERAEMIA [None]
  - EYELID MARGIN CRUSTING [None]
  - LACRIMATION INCREASED [None]
  - EYELID OEDEMA [None]
  - EYE PAIN [None]
